FAERS Safety Report 4539273-3 (Version None)
Quarter: 2004Q4

REPORT INFORMATION
  Report Type: 
  Country: None (occurrence: None)
  Receive Date: 20041227
  Receipt Date: 20041227
  Transmission Date: 20050328
  Serious: Yes (Other)
  Sender: FDA-Public Use
  Company Number: None

PATIENT
  Sex: Female
  Weight: 58.9676 kg

DRUGS (2)
  1. PAXIL [Suspect]
     Indication: HOT FLUSH
     Dosage: 1 A DAY
     Dates: start: 20030901, end: 20041205
  2. PAXIL [Suspect]
     Indication: MENOPAUSE
     Dosage: 1 A DAY
     Dates: start: 20030901, end: 20041205

REACTIONS (2)
  - DIZZINESS [None]
  - FEELING ABNORMAL [None]
